FAERS Safety Report 9376291 (Version 1)
Quarter: 2013Q3

REPORT INFORMATION
  Report Type: Spontaneous
  Country: US (occurrence: US)
  Receive Date: 20130701
  Receipt Date: 20130701
  Transmission Date: 20140515
  Serious: Yes (Hospitalization)
  Sender: FDA-Public Use
  Company Number: US-BRISTOL-MYERS SQUIBB COMPANY-19030345

PATIENT
  Age: 22 Year
  Sex: Male

DRUGS (1)
  1. ABILIFY [Suspect]
     Indication: AUTISM
     Dosage: INITIAL 2MG INCREASED TO 5MG

REACTIONS (3)
  - Lower limb fracture [Unknown]
  - Fall [Unknown]
  - Convulsion [Unknown]
